FAERS Safety Report 18933298 (Version 7)
Quarter: 2021Q2

REPORT INFORMATION
  Report Type: Report from Study
  Country: AU (occurrence: AU)
  Receive Date: 20210224
  Receipt Date: 20210622
  Transmission Date: 20210717
  Serious: Yes (Other)
  Sender: FDA-Public Use
  Company Number: NVSC2021AU039597

PATIENT
  Age: 61 Year
  Sex: Male
  Weight: 75.8 kg

DRUGS (61)
  1. GEMCITABINE. [Suspect]
     Active Substance: GEMCITABINE
     Indication: B-CELL LYMPHOMA
     Dosage: 1938 MG, ONCE/SINGLE
     Route: 042
     Dates: start: 20201002
  2. METOCLOPRAMIDE. [Concomitant]
     Active Substance: METOCLOPRAMIDE
     Indication: NAUSEA
     Dosage: UNK
     Route: 065
     Dates: start: 20201028
  3. OXYCODONE [Concomitant]
     Active Substance: OXYCODONE
     Indication: PAIN
     Dosage: UNK
     Route: 065
     Dates: start: 20201027
  4. FILGRASTIM [Concomitant]
     Active Substance: FILGRASTIM
     Indication: NEUTROPENIA
     Dosage: UNK
     Route: 065
     Dates: start: 20210130, end: 20210130
  5. POTASSIUM [Concomitant]
     Active Substance: POTASSIUM
     Indication: HYPOKALAEMIA
     Dosage: UNK
     Route: 065
     Dates: start: 20210206, end: 20210207
  6. THIAMINE. [Concomitant]
     Active Substance: THIAMINE
     Indication: VITAMIN SUPPLEMENTATION
     Dosage: UNK
     Route: 065
     Dates: start: 20210207, end: 20210209
  7. RITUXIMAB. [Suspect]
     Active Substance: RITUXIMAB
     Indication: B-CELL LYMPHOMA
     Dosage: 725 MG, ONCE/SINGLE
     Route: 042
     Dates: start: 20201001
  8. PANTOPRAZOLE [Concomitant]
     Active Substance: PANTOPRAZOLE
     Indication: PROPHYLAXIS
     Dosage: UNK
     Route: 065
     Dates: start: 20200928, end: 20210329
  9. OXYCODONE [Concomitant]
     Active Substance: OXYCODONE
     Indication: STOMATITIS
     Dosage: UNK
     Route: 065
     Dates: start: 20200303, end: 20210410
  10. OXYCODONE [Concomitant]
     Active Substance: OXYCODONE
     Dosage: UNK
     Route: 065
     Dates: start: 20210206, end: 20210210
  11. LORATADINE. [Concomitant]
     Active Substance: LORATADINE
     Indication: HYPERSENSITIVITY
     Dosage: UNK
     Route: 065
     Dates: start: 20201027, end: 20210305
  12. ALLOPURINOL. [Concomitant]
     Active Substance: ALLOPURINOL
     Indication: PROPHYLAXIS
     Dosage: UNK
     Route: 065
     Dates: start: 20200928
  13. RESPRIM [Concomitant]
     Active Substance: SULFAMETHOXAZOLE\TRIMETHOPRIM
     Indication: ANTIBIOTIC PROPHYLAXIS
     Dosage: UNK
     Route: 065
     Dates: start: 20200928
  14. FENTANYL. [Concomitant]
     Active Substance: FENTANYL
     Indication: PAIN
     Dosage: UNK
     Route: 065
     Dates: start: 20210129, end: 20210129
  15. LIGNOCAINE [Concomitant]
     Active Substance: LIDOCAINE HYDROCHLORIDE
     Indication: STOMATITIS
     Dosage: 2 %
     Route: 065
     Dates: start: 20210129, end: 20210130
  16. METHOXYFLURANE. [Concomitant]
     Active Substance: METHOXYFLURANE
     Indication: PAIN
     Dosage: UNK
     Route: 065
     Dates: start: 20210209, end: 20210209
  17. PETER MAC MOUTHWASH POWDER [Concomitant]
     Active Substance: METHYL SALICYLATE\PEPPERMINT OIL\SODIUM BICARBONATE\SODIUM CHLORIDE
     Indication: MUCOSAL INFLAMMATION
     Dosage: UNK
     Route: 065
     Dates: start: 20210129
  18. CYCLOPHOSPHAMIDE. [Concomitant]
     Active Substance: CYCLOPHOSPHAMIDE
     Dosage: UNK
     Route: 065
     Dates: start: 20201127, end: 20201127
  19. TISAGENLECLEUCEL. [Suspect]
     Active Substance: TISAGENLECLEUCEL
     Indication: B-CELL LYMPHOMA
     Dosage: 3.104X10E8
     Route: 042
     Dates: start: 20201201
  20. CARBOPLATIN. [Suspect]
     Active Substance: CARBOPLATIN
     Indication: B-CELL LYMPHOMA
     Dosage: 700 MG, ONCE/SINGLE
     Route: 042
     Dates: start: 20201028
  21. PARACETAMOL [Concomitant]
     Active Substance: ACETAMINOPHEN
     Indication: STOMATITIS
     Dosage: UNK
     Route: 065
     Dates: start: 20210129, end: 20210131
  22. ONDANSETRON [Concomitant]
     Active Substance: ONDANSETRON
     Indication: NAUSEA
     Dosage: UNK
     Route: 065
     Dates: start: 20201008, end: 20210410
  23. MORPHINE [Concomitant]
     Active Substance: MORPHINE
     Indication: PAIN
     Dosage: UNK
     Route: 065
     Dates: start: 20210129, end: 20210130
  24. PARACETAMOL [Concomitant]
     Active Substance: ACETAMINOPHEN
     Indication: PAIN
     Dosage: UNK
     Route: 065
     Dates: start: 20201130, end: 20210410
  25. POSACONAZOLE [Concomitant]
     Active Substance: POSACONAZOLE
     Indication: PROPHYLAXIS
     Dosage: UNK
     Route: 065
     Dates: start: 20201208
  26. FLUDARABINE [Concomitant]
     Active Substance: FLUDARABINE PHOSPHATE
     Indication: CHEMOTHERAPY
     Dosage: UNK
     Route: 065
     Dates: start: 20201125, end: 20201125
  27. MOVICOL [Concomitant]
     Active Substance: POLYETHYLENE GLYCOL 3350\POTASSIUM CHLORIDE\SODIUM BICARBONATE\SODIUM CHLORIDE
     Indication: PROPHYLAXIS
     Dosage: UNK
     Route: 065
     Dates: start: 20201028
  28. COCAINE [Concomitant]
     Active Substance: COCAINE
     Indication: STOMATITIS
     Dosage: UNK
     Route: 065
     Dates: start: 20210129, end: 20210311
  29. NACL [Concomitant]
     Active Substance: SODIUM CHLORIDE
     Indication: STOMATITIS
     Dosage: UNK
     Route: 065
     Dates: start: 20210129, end: 20210130
  30. PIPERACILLIN/TAZOBACTAM [Concomitant]
     Active Substance: PIPERACILLIN SODIUM\TAZOBACTAM SODIUM
     Indication: SEPSIS
     Dosage: UNK
     Route: 065
     Dates: start: 20210131, end: 20210131
  31. SODIUM CHLORIDE. [Concomitant]
     Active Substance: SODIUM CHLORIDE
     Indication: STOMATITIS
     Dosage: UNK
     Route: 065
     Dates: start: 20210129, end: 20210130
  32. DEXAMETHASONE. [Suspect]
     Active Substance: DEXAMETHASONE
     Indication: B-CELL LYMPHOMA
     Dosage: 40 MG, ONCE/SINGLE
     Route: 048
     Dates: start: 20201001
  33. PARACETAMOL [Concomitant]
     Active Substance: ACETAMINOPHEN
     Indication: ANALGESIC THERAPY
  34. DOCUSATE [Concomitant]
     Active Substance: DOCUSATE
     Indication: PROPHYLAXIS
     Dosage: UNK
     Route: 065
     Dates: start: 20201028
  35. FILGRASTIM [Concomitant]
     Active Substance: FILGRASTIM
     Dosage: UNK
     Route: 065
     Dates: start: 20210207, end: 20210210
  36. LIGNOCAINE [Concomitant]
     Active Substance: LIDOCAINE HYDROCHLORIDE
     Dosage: 2 %
     Route: 065
     Dates: start: 20210207, end: 20210209
  37. CYCLOPHOSPHAMIDE. [Concomitant]
     Active Substance: CYCLOPHOSPHAMIDE
     Indication: CHEMOTHERAPY
     Dosage: UNK
     Route: 065
     Dates: start: 20201125, end: 20201125
  38. SODIUM CHLORIDE. [Concomitant]
     Active Substance: SODIUM CHLORIDE
     Dosage: UNK
     Route: 065
     Dates: start: 20210206, end: 20210207
  39. OXYCODONE [Concomitant]
     Active Substance: OXYCODONE
     Dosage: UNK
     Route: 065
     Dates: start: 20210130, end: 20210131
  40. FLUDARABINE [Concomitant]
     Active Substance: FLUDARABINE PHOSPHATE
     Dosage: UNK
     Route: 065
     Dates: start: 20201126, end: 20201126
  41. COCAINE [Concomitant]
     Active Substance: COCAINE
     Dosage: UNK
     Route: 065
     Dates: start: 20210206, end: 20210208
  42. FILGRASTIM [Concomitant]
     Active Substance: FILGRASTIM
     Indication: NEUTROPHIL COUNT DECREASED
     Dosage: UNK
     Route: 065
     Dates: start: 20210206, end: 20210206
  43. TARGIN [Concomitant]
     Active Substance: NALOXONE HYDROCHLORIDE\OXYCODONE HYDROCHLORIDE
     Indication: PAIN
     Dosage: UNK
     Route: 065
     Dates: start: 20210129, end: 20210311
  44. POTASSIUM [Concomitant]
     Active Substance: POTASSIUM
     Dosage: UNK
     Route: 065
     Dates: start: 20210207, end: 20210207
  45. CYCLOPHOSPHAMIDE. [Concomitant]
     Active Substance: CYCLOPHOSPHAMIDE
     Dosage: UNK
     Route: 065
     Dates: start: 20201126, end: 20201126
  46. CISPLATIN. [Suspect]
     Active Substance: CISPLATIN
     Indication: B-CELL LYMPHOMA
     Dosage: 145 MG, ONCE/SINGLE
     Route: 042
     Dates: start: 20201002
  47. COMPARATOR MESNA [Suspect]
     Active Substance: MESNA
     Indication: NON-HODGKIN^S LYMPHOMA
     Dosage: 9840 MG, Q24H
     Route: 065
     Dates: start: 20201028
  48. METOCLOPRAMIDE. [Concomitant]
     Active Substance: METOCLOPRAMIDE
     Dosage: UNK
     Route: 065
     Dates: start: 20210130, end: 20210212
  49. PANTOPRAZOLE [Concomitant]
     Active Substance: PANTOPRAZOLE
     Dosage: UNK
     Route: 065
     Dates: start: 20201028
  50. ATOVAQUONE. [Concomitant]
     Active Substance: ATOVAQUONE
     Indication: PNEUMOCYSTIS JIROVECII PNEUMONIA
     Dosage: UNK
     Route: 065
     Dates: start: 20201203
  51. FILGRASTIM [Concomitant]
     Active Substance: FILGRASTIM
     Dosage: UNK
     Route: 065
     Dates: start: 20210207, end: 20210326
  52. NACL [Concomitant]
     Active Substance: SODIUM CHLORIDE
     Dosage: UNK
     Route: 065
     Dates: start: 20210206, end: 20210207
  53. TEMAZEPAM. [Concomitant]
     Active Substance: TEMAZEPAM
     Indication: SLEEP DISORDER
     Dosage: UNK
     Route: 065
     Dates: start: 20210130, end: 20210131
  54. THIAMINE. [Concomitant]
     Active Substance: THIAMINE
     Indication: SUPPLEMENTATION THERAPY
     Dosage: UNK
     Route: 065
     Dates: start: 20210210
  55. ETOPOSIDE. [Suspect]
     Active Substance: ETOPOSIDE
     Indication: B-CELL LYMPHOMA
     Dosage: 200 MG, ONCE/SINGLE
     Route: 042
     Dates: start: 20201027
  56. IFOSFAMIDE. [Suspect]
     Active Substance: IFOSFAMIDE
     Indication: B-CELL LYMPHOMA
     Dosage: 3280 MG, ONCE/SINGLE
     Route: 042
     Dates: start: 20201028
  57. TOCILIZUMAB. [Suspect]
     Active Substance: TOCILIZUMAB
     Indication: B-CELL LYMPHOMA
     Dosage: 8 MG/KG
     Route: 042
     Dates: start: 20201204
  58. OXYCODONE [Concomitant]
     Active Substance: OXYCODONE
     Dosage: UNK
     Route: 065
     Dates: start: 20200301, end: 20210410
  59. POSACONAZOLE [Concomitant]
     Active Substance: POSACONAZOLE
     Dosage: UNK
     Route: 065
     Dates: start: 20201215, end: 20210413
  60. FLUDARABINE [Concomitant]
     Active Substance: FLUDARABINE PHOSPHATE
     Dosage: UNK
     Route: 065
     Dates: start: 20201127, end: 20201127
  61. VALACICLOVIR [Concomitant]
     Active Substance: VALACYCLOVIR HYDROCHLORIDE
     Indication: ANTIVIRAL PROPHYLAXIS
     Dosage: UNK
     Route: 065
     Dates: start: 20200301

REACTIONS (3)
  - Cytopenia [Recovering/Resolving]
  - Bone marrow failure [Not Recovered/Not Resolved]
  - Thrombocytopenia [Not Recovered/Not Resolved]

NARRATIVE: CASE EVENT DATE: 20210210
